FAERS Safety Report 7333255-4 (Version None)
Quarter: 2011Q1

REPORT INFORMATION
  Report Type: 
  Country: None (occurrence: None)
  Receive Date: 20110304
  Receipt Date: 20110223
  Transmission Date: 20110831
  Serious: Yes (Other)
  Sender: FDA-Public Use
  Company Number: CY-ASTRAZENECA-2011SE10631

PATIENT
  Sex: Male
  Weight: 130 kg

DRUGS (2)
  1. SEROQUEL [Suspect]
     Route: 048
     Dates: start: 20100420, end: 20101001
  2. SEROXAT [Concomitant]
     Route: 048

REACTIONS (4)
  - DYSPNOEA [None]
  - HYPOAESTHESIA [None]
  - LETHARGY [None]
  - FOOD CRAVING [None]
